FAERS Safety Report 19702273 (Version 1)
Quarter: 2021Q3

REPORT INFORMATION
  Report Type: Spontaneous
  Country: LB (occurrence: LB)
  Receive Date: 20210814
  Receipt Date: 20210814
  Transmission Date: 20211014
  Serious: Yes (Other)
  Sender: FDA-Public Use
  Company Number: LB-ROCHE-2890222

PATIENT
  Sex: Male
  Weight: 70 kg

DRUGS (9)
  1. CYCLOPHOSPHAMIDE. [Suspect]
     Active Substance: CYCLOPHOSPHAMIDE
     Indication: DIFFUSE LARGE B-CELL LYMPHOMA
     Dosage: NUMBER OF CYCLES RECEIVED IN 1ST LINE WAS 4
     Route: 065
     Dates: start: 20210227, end: 20210429
  2. IFOSFAMIDE. [Suspect]
     Active Substance: IFOSFAMIDE
     Indication: DIFFUSE LARGE B-CELL LYMPHOMA
     Dosage: NUMBER OF CYCLES RECEIVED IN 2ND LINE WAS 2
     Route: 065
     Dates: start: 20210607, end: 20210705
  3. RITUXIMAB. [Suspect]
     Active Substance: RITUXIMAB
     Indication: DIFFUSE LARGE B-CELL LYMPHOMA
     Dosage: NUMBER OF CYCLES RECEIVED IN 1ST LINE WAS 4
     Route: 065
     Dates: start: 20210227, end: 20210429
  4. VINCRISTINE [Suspect]
     Active Substance: VINCRISTINE
     Indication: DIFFUSE LARGE B-CELL LYMPHOMA
     Dosage: NUMBER OF CYCLES RECEIVED IN 1ST LINE WAS 4
     Route: 065
     Dates: start: 20210227, end: 20210429
  5. ETOPOSIDE. [Suspect]
     Active Substance: ETOPOSIDE
     Indication: DIFFUSE LARGE B-CELL LYMPHOMA
     Dosage: NUMBER OF CYCLES RECEIVED IN 2ND LINE WAS 2
     Route: 065
     Dates: start: 20210607, end: 20210705
  6. MESNA. [Suspect]
     Active Substance: MESNA
     Indication: DIFFUSE LARGE B-CELL LYMPHOMA
     Dosage: NUMBER OF CYCLES RECEIVED IN 2ND LINE WAS 2
     Route: 065
     Dates: start: 20210607, end: 20210705
  7. CISPLATIN. [Suspect]
     Active Substance: CISPLATIN
     Indication: DIFFUSE LARGE B-CELL LYMPHOMA
     Dosage: NUMBER OF CYCLES RECEIVED IN 2ND LINE WAS 2
     Route: 065
     Dates: start: 20210607, end: 20210705
  8. RITUXIMAB. [Suspect]
     Active Substance: RITUXIMAB
     Dosage: NUMBER OF CYCLES RECEIVED IN 2ND LINE WAS 2
     Route: 065
     Dates: start: 20210607, end: 20210705
  9. ADRIAMYCIN [Suspect]
     Active Substance: DOXORUBICIN HYDROCHLORIDE
     Indication: DIFFUSE LARGE B-CELL LYMPHOMA
     Dosage: NUMBER OF CYCLES RECEIVED IN 1ST LINE WAS 4
     Route: 065
     Dates: start: 20210227, end: 20210429

REACTIONS (1)
  - HIV infection [Unknown]
